FAERS Safety Report 7456228-X (Version None)
Quarter: 2011Q2

REPORT INFORMATION
  Report Type: 
  Country: None (occurrence: None)
  Receive Date: 20110503
  Receipt Date: 20110420
  Transmission Date: 20111010
  Serious: No
  Sender: FDA-Public Use
  Company Number: US-B.I. PHARMACEUTICALS,INC./RIDGEFIELD-2011-BP-11321BP

PATIENT
  Sex: Female

DRUGS (1)
  1. PRADAXA [Suspect]
     Dosage: 300 MG
     Route: 048

REACTIONS (2)
  - COLITIS ISCHAEMIC [None]
  - HAEMATOCHEZIA [None]
